FAERS Safety Report 4686768-8 (Version None)
Quarter: 2005Q2

REPORT INFORMATION
  Report Type: 
  Country: None (occurrence: None)
  Receive Date: 20050606
  Receipt Date: 20050523
  Transmission Date: 20051028
  Serious: Yes (Death)
  Sender: FDA-Public Use
  Company Number: AU_050508605

PATIENT
  Age: 25 Year
  Sex: Male

DRUGS (3)
  1. ZYPREXA [Suspect]
     Indication: SCHIZOPHRENIA
     Dosage: 10 MG OTHER
     Route: 050
     Dates: start: 20040601, end: 20040601
  2. CHLORPROMAZINE [Concomitant]
  3. BENZODIAZEPINE [Concomitant]

REACTIONS (1)
  - DEATH [None]
